FAERS Safety Report 8188853-5 (Version None)
Quarter: 2012Q1

REPORT INFORMATION
  Report Type: 
  Country: None (occurrence: None)
  Receive Date: 20120306
  Receipt Date: 20120301
  Transmission Date: 20120608
  Serious: Yes (Hospitalization)
  Sender: FDA-Public Use
  Company Number: US-GILEAD-2012-0050542

PATIENT
  Sex: Female

DRUGS (10)
  1. LETAIRIS [Suspect]
     Indication: PRODUCT USED FOR UNKNOWN INDICATION
     Dosage: 10 MG, UNK
     Route: 048
     Dates: start: 20100930
  2. ASPIRIN [Concomitant]
  3. PLAVIX [Concomitant]
  4. VENTAVIS [Concomitant]
  5. POTASSIUM CHLORIDE [Concomitant]
  6. LASIX [Concomitant]
  7. PREDNISONE TAB [Concomitant]
  8. PROTONIX [Concomitant]
  9. CRESTOR [Concomitant]
  10. SYMBICORT [Concomitant]

REACTIONS (1)
  - PNEUMONIA [None]
